FAERS Safety Report 9181150 (Version 1)
Quarter: 2013Q1

REPORT INFORMATION
  Report Type: Spontaneous
  Country: US (occurrence: None)
  Receive Date: 20130322
  Receipt Date: 20130322
  Transmission Date: 20140127
  Serious: No
  Sender: FDA-Public Use
  Company Number: None

PATIENT
  Sex: 0

DRUGS (1)
  1. MAGNESIUM SULFATE IN DEXTROSE [Suspect]
     Dates: start: 20130220, end: 20130313

REACTIONS (2)
  - Product contamination microbial [None]
  - Product colour issue [None]
